FAERS Safety Report 8506601-3 (Version None)
Quarter: 2012Q3

REPORT INFORMATION
  Report Type: 
  Country: None (occurrence: None)
  Receive Date: 20120706
  Receipt Date: 20120706
  Transmission Date: 20120928
  Serious: Yes (Hospitalization)
  Sender: FDA-Public Use
  Company Number: None

PATIENT
  Age: 43 Year
  Sex: Female
  Weight: 123.3784 kg

DRUGS (1)
  1. INVEGA [Suspect]
     Dosage: DAILY, A COUP-LE DAYS

REACTIONS (2)
  - SUICIDAL IDEATION [None]
  - VISION BLURRED [None]
